FAERS Safety Report 6303798-0 (Version None)
Quarter: 2009Q3

REPORT INFORMATION
  Report Type: 
  Country: None (occurrence: None)
  Receive Date: 20090805
  Receipt Date: 20090727
  Transmission Date: 20100115
  Serious: Yes (Other)
  Sender: FDA-Public Use
  Company Number: CIP09001966

PATIENT
  Age: 77 Year
  Sex: Female

DRUGS (3)
  1. OPTINATE  (RISEDRONATE SODIUM) [Suspect]
     Indication: OSTEOPOROSIS
     Dosage: 35 MG ONCE WEEKLY, ORAL
     Route: 048
     Dates: start: 20080707, end: 20090705
  2. IPERTEN         (MANIDIPINE HYDROCHLORIDE) [Concomitant]
  3. TENORMIN [Concomitant]

REACTIONS (1)
  - AMAUROSIS FUGAX [None]
